FAERS Safety Report 13834793 (Version 1)
Quarter: 2017Q3

REPORT INFORMATION
  Report Type: Spontaneous
  Country: IT (occurrence: IT)
  Receive Date: 20170804
  Receipt Date: 20170804
  Transmission Date: 20171127
  Serious: Yes (Life-Threatening, Other)
  Sender: FDA-Public Use
  Company Number: IT-LUPIN PHARMACEUTICALS INC.-2017-04280

PATIENT
  Age: 57 Year
  Sex: Female

DRUGS (1)
  1. LINEZOLID. [Suspect]
     Active Substance: LINEZOLID
     Indication: PERITONITIS BACTERIAL
     Dosage: 600 MG, BID
     Route: 065
     Dates: start: 201501

REACTIONS (2)
  - Pancytopenia [Unknown]
  - Toxicity to various agents [Unknown]
